FAERS Safety Report 11290895 (Version 4)
Quarter: 2015Q4

REPORT INFORMATION
  Report Type: Spontaneous
  Country: US (occurrence: US)
  Receive Date: 20150722
  Receipt Date: 20151124
  Transmission Date: 20160304
  Serious: Yes (Hospitalization)
  Sender: FDA-Public Use
  Company Number: US-UNITED THERAPEUTICS-UNT-2015-003838

PATIENT
  Age: 75 Year
  Sex: Male
  Weight: 58.5 kg

DRUGS (7)
  1. REMODULIN [Suspect]
     Active Substance: TREPROSTINIL
     Dosage: 0.040 ?G/KG, CONTINUING
     Route: 041
     Dates: start: 20090902
  2. REMODULIN [Suspect]
     Active Substance: TREPROSTINIL
     Dosage: 0.040 ?G/KG, CONTINUING
     Route: 041
  3. REMODULIN [Suspect]
     Active Substance: TREPROSTINIL
     Dosage: 0.040 ?G/KG, CONTINUING
     Route: 041
  4. ADEMPAS [Suspect]
     Active Substance: RIOCIGUAT
     Indication: PRODUCT USED FOR UNKNOWN INDICATION
     Dosage: UNK
     Dates: end: 20150727
  5. ELIQUIS [Concomitant]
     Active Substance: APIXABAN
     Indication: PRODUCT USED FOR UNKNOWN INDICATION
  6. REMODULIN [Suspect]
     Active Substance: TREPROSTINIL
     Indication: PULMONARY HYPERTENSION
     Dosage: 0.040 ?G/KG, CONTINUING
     Route: 041
     Dates: start: 20090817
  7. TRACLEER [Concomitant]
     Active Substance: BOSENTAN
     Indication: PRODUCT USED FOR UNKNOWN INDICATION

REACTIONS (31)
  - Pollakiuria [Unknown]
  - Injection site erythema [Unknown]
  - Abdominal distension [Unknown]
  - Cough [Unknown]
  - Feeling abnormal [Unknown]
  - Weight decreased [Unknown]
  - Inguinal hernia [Unknown]
  - Fluid retention [Unknown]
  - Chills [Unknown]
  - Pruritus [Unknown]
  - Drug dose omission [Unknown]
  - Vomiting [Unknown]
  - Diarrhoea [Unknown]
  - Abdominal discomfort [Unknown]
  - Nausea [Unknown]
  - Device occlusion [Unknown]
  - Myalgia [Unknown]
  - Paraesthesia [Unknown]
  - Seasonal allergy [Unknown]
  - Back pain [Unknown]
  - Muscle twitching [Unknown]
  - Flushing [Unknown]
  - Dyspnoea [Unknown]
  - Ascites [Unknown]
  - Penile oedema [Unknown]
  - Pain [Unknown]
  - Gait disturbance [Unknown]
  - Injection site pain [Unknown]
  - Umbilical hernia [Unknown]
  - Pain in extremity [Unknown]
  - Rash generalised [Unknown]

NARRATIVE: CASE EVENT DATE: 2015
